FAERS Safety Report 5411113-X (Version None)
Quarter: 2007Q3

REPORT INFORMATION
  Report Type: 
  Country: None (occurrence: None)
  Receive Date: 20070713
  Receipt Date: 20070419
  Transmission Date: 20080115
  Serious: No
  Sender: FDA-Public Use
  Company Number: 2007SP001425

PATIENT
  Age: 80 Year
  Sex: Female
  Weight: 44.4525 kg

DRUGS (4)
  1. LUNESTA [Suspect]
     Indication: INITIAL INSOMNIA
     Dosage: 1 MG;PRN;ORAL ; 1 MG;HS;ORAL ; 1 MG;HS;ORAL
     Route: 048
     Dates: start: 20070101, end: 20070401
  2. LUNESTA [Suspect]
     Indication: INITIAL INSOMNIA
     Dosage: 1 MG;PRN;ORAL ; 1 MG;HS;ORAL ; 1 MG;HS;ORAL
     Route: 048
     Dates: start: 20070401, end: 20070401
  3. LUNESTA [Suspect]
     Indication: INITIAL INSOMNIA
     Dosage: 1 MG;PRN;ORAL ; 1 MG;HS;ORAL ; 1 MG;HS;ORAL
     Route: 048
     Dates: start: 20070401
  4. CARTIA XT [Concomitant]

REACTIONS (3)
  - DRUG INEFFECTIVE [None]
  - INSOMNIA [None]
  - REBOUND EFFECT [None]
